FAERS Safety Report 8387840-1 (Version None)
Quarter: 2012Q2

REPORT INFORMATION
  Report Type: 
  Country: None (occurrence: None)
  Receive Date: 20120525
  Receipt Date: 20120302
  Transmission Date: 20120825
  Serious: No
  Sender: FDA-Public Use
  Company Number: US-BRISTOL-MYERS SQUIBB COMPANY-16430191

PATIENT
  Age: 47 Year

DRUGS (2)
  1. KOMBIGLYZE XR [Suspect]
     Dosage: 1DF=2.5/1000 UNIT NOS
  2. MULTI-VITAMIN [Concomitant]

REACTIONS (1)
  - GLYCOSYLATED HAEMOGLOBIN INCREASED [None]
